FAERS Safety Report 6812785-5 (Version None)
Quarter: 2010Q3

REPORT INFORMATION
  Report Type: 
  Country: None (occurrence: None)
  Receive Date: 20100701
  Receipt Date: 20100623
  Transmission Date: 20110219
  Serious: Yes (Death)
  Sender: FDA-Public Use
  Company Number: B0661472A

PATIENT
  Sex: Male

DRUGS (2)
  1. LAMICTAL [Suspect]
     Indication: PARTIAL SEIZURES
     Dosage: 30MG PER DAY
     Route: 048
     Dates: start: 20100407, end: 20100522
  2. DEPAKENE [Concomitant]
     Indication: PARTIAL SEIZURES
     Dosage: 600MG PER DAY
     Route: 048
     Dates: start: 20091104, end: 20100522

REACTIONS (1)
  - CARDIO-RESPIRATORY ARREST [None]
